FAERS Safety Report 15309719 (Version 1)
Quarter: 2018Q3

REPORT INFORMATION
  Report Type: Spontaneous
  Country: US (occurrence: US)
  Receive Date: 20180813
  Receipt Date: 20180813
  Transmission Date: 20181010
  Serious: No
  Sender: FDA-Public Use
  Company Number: None

PATIENT
  Sex: Female

DRUGS (1)
  1. ZOLADEX [Suspect]
     Active Substance: GOSERELIN ACETATE
     Indication: FIBROSIS
     Dosage: OTHER FREQUENCY:EVERY 28 DAYS ;?
     Route: 058
     Dates: start: 20180718

REACTIONS (3)
  - Hot flush [None]
  - Nervousness [None]
  - Feeling abnormal [None]
